FAERS Safety Report 5517034-6 (Version None)
Quarter: 2007Q4

REPORT INFORMATION
  Report Type: 
  Country: None (occurrence: None)
  Receive Date: 20071114
  Receipt Date: 20070712
  Transmission Date: 20080405
  Serious: No
  Sender: FDA-Public Use
  Company Number: A0663244A

PATIENT
  Age: 61 Year

DRUGS (1)
  1. COMMIT [Suspect]

REACTIONS (2)
  - DIARRHOEA [None]
  - INTENTIONAL DRUG MISUSE [None]
